FAERS Safety Report 21130009 (Version 1)
Quarter: 2022Q3

REPORT INFORMATION
  Report Type: Spontaneous
  Country: US (occurrence: US)
  Receive Date: 20220726
  Receipt Date: 20220726
  Transmission Date: 20221026
  Serious: No
  Sender: FDA-Public Use
  Company Number: CID000000000026410

PATIENT
  Age: 92 Year
  Sex: Female

DRUGS (1)
  1. LIDOCAINE [Suspect]
     Active Substance: LIDOCAINE
     Indication: Neck pain
     Route: 065

REACTIONS (3)
  - Pruritus [Recovering/Resolving]
  - Application site acne [Not Recovered/Not Resolved]
  - Product use in unapproved indication [Not Recovered/Not Resolved]
